FAERS Safety Report 8010515-5 (Version None)
Quarter: 2011Q4

REPORT INFORMATION
  Report Type: 
  Country: None (occurrence: None)
  Receive Date: 20111222
  Receipt Date: 20111215
  Transmission Date: 20120403
  Serious: Yes (Hospitalization)
  Sender: FDA-Public Use
  Company Number: 1000011082

PATIENT
  Age: 5 Decade
  Sex: Female

DRUGS (5)
  1. SAVELLA [Suspect]
     Indication: FIBROMYALGIA
     Dosage: TITRATED OVER A FEW WEEKS TO 100 MG DAILY ; 100 MG (50 M,2 IN 1 D)
     Dates: start: 20090101
  2. SAVELLA [Suspect]
     Indication: FIBROMYALGIA
     Dosage: TITRATED OVER A FEW WEEKS TO 100 MG DAILY ; 100 MG (50 M,2 IN 1 D)
     Dates: start: 20090101, end: 20090101
  3. HYDROXYCHLOROQUINE SULFATE [Suspect]
     Indication: ARTHRALGIA
     Dosage: 400 MG (200 MG,2 IN 1 D)
     Dates: start: 20080301
  4. ENALAPRIL MALEATE [Concomitant]
  5. CARVEDILOL [Concomitant]

REACTIONS (17)
  - LEUKOPENIA [None]
  - HYPERTENSION [None]
  - FLUID RETENTION [None]
  - SINUS TACHYCARDIA [None]
  - VENTRICULAR HYPOKINESIA [None]
  - MITRAL VALVE INCOMPETENCE [None]
  - PAIN [None]
  - BLOOD CATECHOLAMINES INCREASED [None]
  - ELECTROCARDIOGRAM T WAVE INVERSION [None]
  - UNDIFFERENTIATED CONNECTIVE TISSUE DISEASE [None]
  - DIASTOLIC DYSFUNCTION [None]
  - FATIGUE [None]
  - PHOTOSENSITIVITY REACTION [None]
  - HEART RATE INCREASED [None]
  - NOREPINEPHRINE INCREASED [None]
  - FIBROMYALGIA [None]
  - CARDIOMYOPATHY [None]
